FAERS Safety Report 14047244 (Version 2)
Quarter: 2017Q4

REPORT INFORMATION
  Report Type: Spontaneous
  Country: ES (occurrence: ES)
  Receive Date: 20171005
  Receipt Date: 20171010
  Transmission Date: 20180321
  Serious: Yes (Other)
  Sender: FDA-Public Use
  Company Number: ES-PFIZER INC-2017427795

PATIENT
  Age: 57 Year
  Sex: Male
  Weight: 88 kg

DRUGS (5)
  1. BRILIQUE [Interacting]
     Active Substance: TICAGRELOR
     Dosage: 90 MG, BID
     Route: 048
     Dates: start: 20161108
  2. ADIRO [Concomitant]
     Active Substance: ASPIRIN
     Dosage: 100 MG, QD
     Route: 048
     Dates: start: 20161108
  3. PANTECTA [Suspect]
     Active Substance: PANTOPRAZOLE SODIUM
     Indication: PROPHYLAXIS AGAINST GASTROINTESTINAL ULCER
     Dosage: 40 MG, QD
     Route: 048
     Dates: start: 20161108
  4. EMCONCOR [Concomitant]
     Active Substance: BISOPROLOL FUMARATE
     Dosage: 2.5 MG, QD
     Route: 048
     Dates: start: 20161108
  5. PREVENCOR [Interacting]
     Active Substance: ATORVASTATIN CALCIUM
     Indication: HYPERCHOLESTEROLAEMIA
     Dosage: 80 MG, QD
     Route: 048
     Dates: start: 20161108

REACTIONS (2)
  - Muscle rupture [Recovered/Resolved with Sequelae]
  - Drug interaction [Unknown]

NARRATIVE: CASE EVENT DATE: 20161108
